FAERS Safety Report 16273713 (Version 2)
Quarter: 2019Q2

REPORT INFORMATION
  Report Type: Spontaneous
  Country: US (occurrence: US)
  Receive Date: 20190506
  Receipt Date: 20190509
  Transmission Date: 20190711
  Serious: Yes (Other)
  Sender: FDA-Public Use
  Company Number: US-BAYER-2019-084981

PATIENT

DRUGS (3)
  1. DIPHENHYDRAMINE HYDROCHLORIDE. [Concomitant]
     Active Substance: DIPHENHYDRAMINE HYDROCHLORIDE
  2. PANZYGA [Concomitant]
     Active Substance: HUMAN IMMUNOGLOBULIN G
  3. CLARITIN [Suspect]
     Active Substance: LORATADINE
     Dosage: UNK

REACTIONS (3)
  - Chest discomfort [Unknown]
  - Pulmonary congestion [Unknown]
  - Abdominal discomfort [Unknown]
